FAERS Safety Report 11838043 (Version 8)
Quarter: 2017Q1

REPORT INFORMATION
  Report Type: Report from Study
  Country: BR (occurrence: BR)
  Receive Date: 20151215
  Receipt Date: 20170123
  Transmission Date: 20170428
  Serious: Yes (Hospitalization, Other)
  Sender: FDA-Public Use
  Company Number: PHHY2015BR079757

PATIENT
  Age: 58 Year
  Sex: Female
  Weight: 71 kg

DRUGS (3)
  1. SANDOSTATIN LAR DEPOT [Suspect]
     Active Substance: OCTREOTIDE ACETATE
     Indication: ACROMEGALY
     Dosage: 20 MG, QMO, ONCE A MONTH
     Route: 030
     Dates: start: 2005
  2. CABERGOLINE. [Concomitant]
     Active Substance: CABERGOLINE
     Indication: PRODUCT USED FOR UNKNOWN INDICATION
     Dosage: 2 DF, QOD
     Route: 065
  3. SANDOSTATIN LAR DEPOT [Suspect]
     Active Substance: OCTREOTIDE ACETATE
     Indication: PITUITARY TUMOUR

REACTIONS (31)
  - Erythema [Unknown]
  - Visual field defect [Unknown]
  - Cranial nerve disorder [Unknown]
  - Visual impairment [Unknown]
  - Hypokinesia [Unknown]
  - Chondropathy [Unknown]
  - Gait disturbance [Unknown]
  - Blindness unilateral [Unknown]
  - Irritability [Unknown]
  - Musculoskeletal pain [Unknown]
  - Gastric dilatation [Unknown]
  - Intraocular pressure increased [Unknown]
  - Pain [Unknown]
  - Blood growth hormone increased [Unknown]
  - Limb discomfort [Recovering/Resolving]
  - Hypoaesthesia [Not Recovered/Not Resolved]
  - Weight decreased [Unknown]
  - Arthralgia [Unknown]
  - Headache [Unknown]
  - Joint swelling [Unknown]
  - Malaise [Unknown]
  - Wound infection bacterial [Unknown]
  - Crying [Unknown]
  - Amnesia [Unknown]
  - Arthropathy [Unknown]
  - Eye burns [Unknown]
  - Joint injury [Recovering/Resolving]
  - Back pain [Not Recovered/Not Resolved]
  - Pain in extremity [Unknown]
  - Weight increased [Unknown]
  - Abdominal pain upper [Unknown]

NARRATIVE: CASE EVENT DATE: 201405
